FAERS Safety Report 4404546-1 (Version None)
Quarter: 2004Q3

REPORT INFORMATION
  Report Type: 
  Country: None (occurrence: None)
  Receive Date: 20040720
  Receipt Date: 20040709
  Transmission Date: 20050211
  Serious: Yes (Other)
  Sender: FDA-Public Use
  Company Number: FR-JNJFOC-20040702402

PATIENT
  Age: 65 Year
  Sex: Female

DRUGS (3)
  1. TOPIRAMATE [Suspect]
     Indication: EPILEPSY
     Dosage: 400 MG, IN 1 DAY, ORAL
     Route: 048
     Dates: start: 20000101
  2. SEGLOR (DIHYDROERGOTAMINE MESILATE) [Concomitant]
  3. EFFEXOR [Concomitant]

REACTIONS (5)
  - ANXIETY [None]
  - COMA [None]
  - DEHYDRATION [None]
  - PERSECUTORY DELUSION [None]
  - WEIGHT DECREASED [None]
